FAERS Safety Report 5624584-0 (Version None)
Quarter: 2008Q1

REPORT INFORMATION
  Report Type: 
  Country: None (occurrence: None)
  Receive Date: 20080208
  Receipt Date: 20080208
  Transmission Date: 20080703
  Serious: Yes (Hospitalization)
  Sender: FDA-Public Use
  Company Number: None

PATIENT
  Sex: Female
  Weight: 48.8 kg

DRUGS (1)
  1. TEMOZOLOMIDE (STUDY DRUG) [Suspect]
     Indication: ACUTE MYELOID LEUKAEMIA

REACTIONS (1)
  - NO ADVERSE EVENT [None]
